FAERS Safety Report 16615760 (Version 1)
Quarter: 2019Q3

REPORT INFORMATION
  Report Type: Report from Study
  Country: None (occurrence: US)
  Receive Date: 20190723
  Receipt Date: 20190723
  Transmission Date: 20191004
  Serious: Yes (Hospitalization, Other)
  Sender: FDA-Public Use
  Company Number: US-ABBVIE-19K-163-2794516-00

PATIENT
  Age: 68 Year
  Sex: Female
  Weight: 78.09 kg

DRUGS (5)
  1. HUMIRA [Suspect]
     Active Substance: ADALIMUMAB
     Route: 058
     Dates: start: 201811, end: 201905
  2. METFORMIN [Concomitant]
     Active Substance: METFORMIN HYDROCHLORIDE
     Indication: TYPE 2 DIABETES MELLITUS
  3. HUMIRA [Suspect]
     Active Substance: ADALIMUMAB
     Route: 058
     Dates: start: 201906
  4. HUMIRA [Suspect]
     Active Substance: ADALIMUMAB
     Indication: RHEUMATOID ARTHRITIS
     Route: 058
     Dates: start: 201801, end: 201801
  5. OXYGEN. [Concomitant]
     Active Substance: OXYGEN
     Indication: CHEMICAL BURN OF RESPIRATORY TRACT

REACTIONS (4)
  - Arthralgia [Recovering/Resolving]
  - Sciatic nerve neuropathy [Unknown]
  - Exostosis [Unknown]
  - Meniscus injury [Recovering/Resolving]

NARRATIVE: CASE EVENT DATE: 201901
